FAERS Safety Report 23636201 (Version 1)
Quarter: 2024Q1

REPORT INFORMATION
  Report Type: Spontaneous
  Country: US (occurrence: US)
  Receive Date: 20240315
  Receipt Date: 20240315
  Transmission Date: 20240410
  Serious: No
  Sender: FDA-Public Use
  Company Number: US-TEVA-VS-3151323

PATIENT
  Sex: Female

DRUGS (2)
  1. NUVIGIL [Suspect]
     Active Substance: ARMODAFINIL
     Indication: Multiple sclerosis
     Route: 065
  2. PROVIGIL [Suspect]
     Active Substance: MODAFINIL
     Indication: Multiple sclerosis
     Route: 065

REACTIONS (3)
  - Fall [Unknown]
  - Insurance issue [Unknown]
  - Off label use [Unknown]
